FAERS Safety Report 6540655-9 (Version None)
Quarter: 2010Q1

REPORT INFORMATION
  Report Type: 
  Country: None (occurrence: None)
  Receive Date: 20100118
  Receipt Date: 20100112
  Transmission Date: 20100710
  Serious: Yes (Hospitalization, Disabling, Other)
  Sender: FDA-Public Use
  Company Number: BR-ELI_LILLY_AND_COMPANY-BR200912002947

PATIENT
  Sex: Female
  Weight: 62 kg

DRUGS (15)
  1. FORTEO [Suspect]
     Indication: OSTEOPOROSIS
     Dosage: 20 UG, DAILY (1/D)
     Route: 058
     Dates: start: 20071208
  2. OMEPRAZOL [Concomitant]
     Indication: GASTRIC DISORDER
     Dosage: 20 MG, DAILY (1/D)
     Route: 048
  3. ATENOLOL [Concomitant]
     Dosage: UNK, UNKNOWN
     Route: 065
  4. ASPIRIN [Concomitant]
     Dosage: UNK, UNKNOWN
     Route: 065
  5. ACETAMINOPHEN [Concomitant]
     Dosage: UNK, UNKNOWN
     Route: 065
  6. TRAMADOL [Concomitant]
     Dosage: UNK, UNKNOWN
     Route: 065
  7. CLONAZEPAM [Concomitant]
     Dosage: UNK, UNKNOWN
     Route: 065
  8. FENTANYL [Concomitant]
     Dosage: UNK, UNKNOWN
     Route: 062
  9. CITALOPRAM HYDROBROMIDE [Concomitant]
     Dosage: UNK, UNKNOWN
     Route: 065
  10. SIMVASTATIN [Concomitant]
     Dosage: UNK, UNKNOWN
     Route: 065
  11. CARBAMAZEPINE [Concomitant]
     Dosage: UNK, UNKNOWN
     Route: 065
  12. METICORTEN [Concomitant]
     Dosage: UNK, UNKNOWN
     Route: 065
  13. LOSARTAN [Concomitant]
     Dosage: UNK, UNKNOWN
     Route: 065
  14. OSCAL [Concomitant]
     Dosage: UNK, UNKNOWN
     Route: 065
  15. SUSTRATE [Concomitant]
     Dosage: UNK, UNKNOWN
     Route: 065

REACTIONS (9)
  - ABASIA [None]
  - INFECTION [None]
  - MEDICAL DEVICE IMPLANTATION [None]
  - MEDICAL DEVICE REMOVAL [None]
  - PAIN [None]
  - PATHOLOGICAL FRACTURE [None]
  - PYREXIA [None]
  - SPINAL FRACTURE [None]
  - URINARY TRACT INFECTION [None]
